FAERS Safety Report 14915715 (Version 7)
Quarter: 2018Q2

REPORT INFORMATION
  Report Type: Spontaneous
  Country: US (occurrence: US)
  Receive Date: 20180518
  Receipt Date: 20180622
  Transmission Date: 20180711
  Serious: Yes (Hospitalization)
  Sender: FDA-Public Use
  Company Number: US-ACTELION-A-NJ2018-170778

PATIENT
  Age: 75 Year
  Sex: Female
  Weight: 58.5 kg

DRUGS (4)
  1. VELETRI [Suspect]
     Active Substance: EPOPROSTENOL
     Indication: PULMONARY ARTERIAL HYPERTENSION
     Dosage: 12 NG/KG, PER MIN
     Route: 042
  2. UPTRAVI [Suspect]
     Active Substance: SELEXIPAG
     Indication: PULMONARY ARTERIAL HYPERTENSION
     Route: 048
  3. ELIQUIS [Concomitant]
     Active Substance: APIXABAN
  4. VELETRI [Suspect]
     Active Substance: EPOPROSTENOL
     Dosage: 19 NG/KG, PER MIN
     Route: 042

REACTIONS (15)
  - Malaise [Recovering/Resolving]
  - Device infusion issue [Unknown]
  - Renal impairment [Unknown]
  - Haemoglobin decreased [Unknown]
  - Transfusion [Unknown]
  - Product preparation error [Unknown]
  - Diarrhoea [Unknown]
  - Weight increased [Unknown]
  - Headache [Unknown]
  - Fall [Unknown]
  - Fluid overload [Unknown]
  - Fluid retention [Unknown]
  - Femur fracture [Unknown]
  - Gait inability [Unknown]
  - Haemorrhage [Unknown]

NARRATIVE: CASE EVENT DATE: 20180507
